FAERS Safety Report 6417806-X (Version None)
Quarter: 2009Q4

REPORT INFORMATION
  Report Type: 
  Country: None (occurrence: None)
  Receive Date: 20091027
  Receipt Date: 20091027
  Transmission Date: 20100525
  Serious: Yes (Hospitalization)
  Sender: FDA-Public Use
  Company Number: None

PATIENT
  Sex: Male
  Weight: 59 kg

DRUGS (7)
  1. LASIX [Suspect]
     Indication: CARDIAC FAILURE CONGESTIVE
     Dosage: 1 TABLET BY MOUTH DAILY YEARS
  2. METOLAZONE [Suspect]
     Indication: HYPERTENSION
     Dosage: 1/2 TABLET AS NEEDED PO
     Route: 048
  3. CALCIUM GLUCONATE [Concomitant]
  4. SIMVASTATIN [Concomitant]
  5. MAGNESIUM OXIDE [Concomitant]
  6. COUMADIN [Concomitant]
  7. MULTI-VITAMINS [Concomitant]

REACTIONS (3)
  - BLOOD CREATININE INCREASED [None]
  - BLOOD POTASSIUM DECREASED [None]
  - WEIGHT DECREASED [None]
